FAERS Safety Report 9312212 (Version 3)
Quarter: 2013Q4

REPORT INFORMATION
  Report Type: Spontaneous
  Country: GB (occurrence: GB)
  Receive Date: 20130528
  Receipt Date: 20131114
  Transmission Date: 20140711
  Serious: Yes (Hospitalization)
  Sender: FDA-Public Use
  Company Number: GB-TEVA-407337ISR

PATIENT
  Age: 58 Year
  Sex: Male
  Weight: 94 kg

DRUGS (5)
  1. LANSOPRAZOLE [Suspect]
     Indication: GASTROOESOPHAGEAL REFLUX DISEASE
     Dosage: 15 MILLIGRAM DAILY;
     Route: 048
  2. GOLIMUMAB [Suspect]
     Indication: PSORIATIC ARTHROPATHY
     Route: 058
     Dates: start: 20120824
  3. GOLIMUMAB [Suspect]
     Indication: PSORIATIC ARTHROPATHY
     Route: 058
     Dates: start: 201207
  4. ARCOXIA [Suspect]
     Indication: PSORIATIC ARTHROPATHY
     Dosage: 90 MILLIGRAM DAILY;
     Route: 048
  5. CO-CODAMOL [Suspect]
     Indication: PSORIATIC ARTHROPATHY
     Dosage: DOSAGE FORM: TABLET, 240/4GMS
     Route: 048

REACTIONS (1)
  - Allodynia [Recovering/Resolving]
